FAERS Safety Report 24792121 (Version 9)
Quarter: 2025Q2

REPORT INFORMATION
  Report Type: Report from Study
  Country: US (occurrence: US)
  Receive Date: 20241231
  Receipt Date: 20250627
  Transmission Date: 20250717
  Serious: Yes (Hospitalization)
  Sender: DECIPHERA PHARMACEUTICALS
  Company Number: US-DECIPHERA PHARMACEUTICALS LLC-2024US001074

PATIENT
  Age: 78 Year
  Sex: Male

DRUGS (3)
  1. QINLOCK [Suspect]
     Active Substance: RIPRETINIB
     Indication: Gastrointestinal stromal tumour
     Dosage: 50 MILLIGRAM, QD
     Route: 048
     Dates: start: 20240605
  2. QINLOCK [Suspect]
     Active Substance: RIPRETINIB
     Indication: Soft tissue sarcoma
     Dosage: 50 MILLIGRAM, QD
     Route: 048
     Dates: end: 202504
  3. QINLOCK [Suspect]
     Active Substance: RIPRETINIB
     Indication: Malignant connective tissue neoplasm
     Dosage: 50 MILLIGRAM, QD
     Route: 048
     Dates: end: 2025

REACTIONS (10)
  - Fall [Unknown]
  - Joint swelling [Unknown]
  - Renal failure [Unknown]
  - Arthralgia [Unknown]
  - Skin lesion [Unknown]
  - Joint injury [Unknown]
  - Gait disturbance [Not Recovered/Not Resolved]
  - Red blood cell count decreased [Unknown]
  - Blood test abnormal [Unknown]
  - Underdose [Unknown]

NARRATIVE: CASE EVENT DATE: 20240101
